FAERS Safety Report 7733402-6 (Version None)
Quarter: 2011Q3

REPORT INFORMATION
  Report Type: 
  Country: None (occurrence: None)
  Receive Date: 20110907
  Receipt Date: 20110831
  Transmission Date: 20111222
  Serious: Yes (Other)
  Sender: FDA-Public Use
  Company Number: BR-ROCHE-800146

PATIENT
  Sex: Male

DRUGS (10)
  1. GLUCOBAY [Concomitant]
  2. METFORMIN HCL [Concomitant]
  3. PAMELOR [Concomitant]
  4. CLONAZEPAM [Suspect]
     Route: 065
  5. REBIF [Suspect]
     Dosage: FREQUENCY: 3 TINES A WEEK
     Route: 065
     Dates: start: 20081117, end: 20110601
  6. NAPRIX A [Concomitant]
  7. MANTIDAN [Concomitant]
  8. EXODUS [Concomitant]
  9. SIMVASTATIN [Concomitant]
  10. SOMALGIN [Concomitant]
     Dosage: DOSE: 325 DRUG REPORTED AS SOMALGIN CARDIO

REACTIONS (1)
  - LUNG NEOPLASM MALIGNANT [None]
